FAERS Safety Report 5305114-X (Version None)
Quarter: 2007Q2

REPORT INFORMATION
  Report Type: 
  Country: None (occurrence: None)
  Receive Date: 20070417
  Receipt Date: 20070409
  Transmission Date: 20071010
  Serious: Yes (Other)
  Sender: FDA-Public Use
  Company Number: S07-USA-01533-01

PATIENT
  Sex: Male

DRUGS (1)
  1. CELEXA [Suspect]
     Indication: DEPRESSION
     Dosage: 40 MG QD PO
     Route: 048
     Dates: start: 20030510

REACTIONS (12)
  - AGGRESSION [None]
  - AGITATION [None]
  - ANGER [None]
  - CONFUSIONAL STATE [None]
  - HOMICIDE [None]
  - HOSTILITY [None]
  - HYPOMANIA [None]
  - IMPRISONMENT [None]
  - INSOMNIA [None]
  - IRRITABILITY [None]
  - MANIA [None]
  - THINKING ABNORMAL [None]
